FAERS Safety Report 6470641-9 (Version None)
Quarter: 2009Q4

REPORT INFORMATION
  Report Type: 
  Country: None (occurrence: None)
  Receive Date: 20091203
  Receipt Date: 20091126
  Transmission Date: 20100525
  Serious: Yes (Other)
  Sender: FDA-Public Use
  Company Number: DE-WYE-G04930209

PATIENT
  Sex: Male
  Weight: 70 kg

DRUGS (2)
  1. REFACTO [Suspect]
     Indication: FACTOR VIII DEFICIENCY
     Route: 042
     Dates: start: 20090703, end: 20091101
  2. REFACTO [Suspect]
     Route: 042
     Dates: start: 20091101

REACTIONS (4)
  - COAGULATION FACTOR VIII LEVEL DECREASED [None]
  - EPISTAXIS [None]
  - FACTOR VIII INHIBITION [None]
  - INFECTION [None]
